FAERS Safety Report 6908507-X (Version None)
Quarter: 2010Q3

REPORT INFORMATION
  Report Type: 
  Country: None (occurrence: None)
  Receive Date: 20100805
  Receipt Date: 20100726
  Transmission Date: 20110219
  Serious: Yes (Life-Threatening)
  Sender: FDA-Public Use
  Company Number: JP-PFIZER INC-2010076704

PATIENT
  Age: 78 Year
  Sex: Male
  Weight: 56 kg

DRUGS (4)
  1. SUNITINIB MALATE [Suspect]
     Indication: RENAL CELL CARCINOMA
     Dosage: 37.5 MG, 1X/DAY
     Route: 048
     Dates: start: 20090416, end: 20090428
  2. GLYBURIDE [Concomitant]
     Dosage: 3.125 MG, 1X/DAY
     Route: 048
  3. TAKEPRON [Concomitant]
     Dosage: 15 MG, 1X/DAY
     Route: 048
  4. MAG-LAX [Concomitant]
     Dosage: 330 MG, 3X/DAY
     Route: 048

REACTIONS (2)
  - DISSEMINATED INTRAVASCULAR COAGULATION [None]
  - PNEUMONIA [None]
